FAERS Safety Report 8623070-3 (Version None)
Quarter: 2012Q3

REPORT INFORMATION
  Report Type: 
  Country: None (occurrence: None)
  Receive Date: 20120827
  Receipt Date: 20120817
  Transmission Date: 20120928
  Serious: Yes (Other)
  Sender: FDA-Public Use
  Company Number: CA-JNJFOC-20120809510

PATIENT
  Sex: Female
  Weight: 71 kg

DRUGS (4)
  1. PREDNISONE TAB [Concomitant]
     Route: 065
  2. REMICADE [Suspect]
     Indication: RHEUMATOID ARTHRITIS
     Route: 042
     Dates: start: 20060101
  3. CALCIUM [Concomitant]
     Route: 065
  4. ACTONEL [Concomitant]
     Route: 065

REACTIONS (4)
  - MOBILITY DECREASED [None]
  - OEDEMA PERIPHERAL [None]
  - SKIN DISCOLOURATION [None]
  - PAIN [None]
